FAERS Safety Report 7415711-3 (Version None)
Quarter: 2011Q2

REPORT INFORMATION
  Report Type: 
  Country: None (occurrence: None)
  Receive Date: 20110414
  Receipt Date: 20110412
  Transmission Date: 20111010
  Serious: Yes (Hospitalization)
  Sender: FDA-Public Use
  Company Number: CA-BRISTOL-MYERS SQUIBB COMPANY-15612609

PATIENT
  Age: 47 Year
  Sex: Male

DRUGS (1)
  1. PRAVACHOL [Suspect]
     Indication: BLOOD CHOLESTEROL

REACTIONS (3)
  - PULMONARY THROMBOSIS [None]
  - AMNESIA [None]
  - ERECTILE DYSFUNCTION [None]
